FAERS Safety Report 25544992 (Version 12)
Quarter: 2025Q4

REPORT INFORMATION
  Report Type: Report from Study
  Country: JP (occurrence: JP)
  Receive Date: 20250711
  Receipt Date: 20251204
  Transmission Date: 20260118
  Serious: Yes (Life-Threatening, Hospitalization, Other)
  Sender: RECORDATI
  Company Number: JP-SAKK-2025SA011382AA

PATIENT
  Age: 67 Year
  Sex: Female
  Weight: 36.4 kg

DRUGS (30)
  1. ENJAYMO [Suspect]
     Active Substance: SUTIMLIMAB-JOME
     Indication: Cold type haemolytic anaemia
     Dosage: 6500 MG (50 MG/ML), (EVERY 2 WEEKS) (INTRAVENOUS INFUSION)
     Route: 041
     Dates: start: 20240925, end: 20250108
  2. ENJAYMO [Suspect]
     Active Substance: SUTIMLIMAB-JOME
     Dosage: 6500 MG (50 MG/ML), SINGLE DOSE (INTRAVENOUS INFUSION)
     Route: 041
     Dates: start: 20250129, end: 20250129
  3. ENJAYMO [Suspect]
     Active Substance: SUTIMLIMAB-JOME
     Dosage: 6500 MG (50 MG/ML), SINGLE DOSE (INTRAVENOUS INFUSION)
     Route: 041
     Dates: start: 20250218, end: 20250218
  4. ENJAYMO [Suspect]
     Active Substance: SUTIMLIMAB-JOME
     Dosage: 6500 MG (50 MG/ML), SINGLE DOSE/ONE TIME (INTRAVENOUS INFUSION)
     Route: 041
     Dates: start: 20250312, end: 20250312
  5. ENJAYMO [Suspect]
     Active Substance: SUTIMLIMAB-JOME
     Dosage: 6500 MG (50 MG/ML), EVERY 2 WEEKS (Q2W) (INTRAVENOUS INFUSION)
     Route: 041
     Dates: start: 20250704, end: 20250718
  6. ETIZOLAM [Concomitant]
     Active Substance: ETIZOLAM
     Indication: Panic disorder
     Dosage: 3 MG, TID (3 TIMES A DAY)
     Route: 048
     Dates: start: 2023
  7. ATENOLOL [Concomitant]
     Active Substance: ATENOLOL
     Indication: Arrhythmia
     Dosage: 25 MG, BID (TWICE A DAY)
     Route: 048
     Dates: end: 20250704
  8. EZETIMIBE [Concomitant]
     Active Substance: EZETIMIBE
     Indication: Dyslipidaemia
     Dosage: 10 MG, QD (ONCE A DAY)
     Route: 048
     Dates: end: 20250704
  9. BETAHISTINE MESILATE [Concomitant]
     Active Substance: BETAHISTINE MESILATE
     Indication: Panic disorder
     Dosage: 24 MG, TID (3 TIMES A DAY)
     Route: 048
     Dates: start: 2023, end: 20250704
  10. BETAHISTINE MESILATE [Concomitant]
     Active Substance: BETAHISTINE MESILATE
     Indication: Dizziness
     Dosage: 12 MG, PRN, AS NEEDED
     Route: 048
  11. ETHYL LOFLAZEPATE [Concomitant]
     Active Substance: ETHYL LOFLAZEPATE
     Indication: Insomnia
     Dosage: 1 MG, QD (ONCE A DAY)
     Route: 048
     Dates: start: 2023
  12. ETHYL LOFLAZEPATE [Concomitant]
     Active Substance: ETHYL LOFLAZEPATE
     Dosage: 1 MG, QD (ONCE A DAY)
     Route: 048
     Dates: start: 20250704
  13. MAGNESIUM OXIDE [Concomitant]
     Active Substance: MAGNESIUM OXIDE
     Indication: Constipation
     Dosage: 330 MG, QD (ONCE A DAY) TABLETS
     Route: 048
     Dates: end: 20250704
  14. Solita t granules no.3 [Concomitant]
     Indication: Electrolyte substitution therapy
     Dosage: 12 GRAM, TID (3 TIMES A DAY)
     Route: 048
     Dates: end: 20250704
  15. LOXOPROFEN SODIUM DIHYDRATE [Concomitant]
     Active Substance: LOXOPROFEN SODIUM DIHYDRATE
     Indication: Back pain
     Dosage: 100 MG, PRN (AS NEEDED), PASTING
     Dates: start: 20240809
  16. DOMPERIDONE [Concomitant]
     Active Substance: DOMPERIDONE
     Indication: Nausea
     Dosage: 10 MG, PRN (AS NEEDED)
     Route: 048
     Dates: end: 20250704
  17. MIYA-BM [Concomitant]
     Active Substance: CLOSTRIDIUM BUTYRICUM SPORES STRAIN M-55
     Indication: Diarrhoea
     Dosage: 3 TABLESTS, PRN (AS NEEDED) (FINE GRANULE)
     Route: 048
     Dates: start: 20241101, end: 20250704
  18. BISOPROLOL FUMARATE [Concomitant]
     Active Substance: BISOPROLOL FUMARATE
     Indication: Palpitations
     Dosage: 0.625 MG, PRN (AS NEEDED)
     Route: 048
     Dates: start: 20240830, end: 20250704
  19. BISOPROLOL FUMARATE [Concomitant]
     Active Substance: BISOPROLOL FUMARATE
     Indication: Hypertension
     Dosage: 0.625 MG, PRN (AS NEEDED)
     Route: 048
     Dates: start: 20250724
  20. TEPRENONE [Concomitant]
     Active Substance: TEPRENONE
     Indication: Gastric mucosal lesion
     Dosage: 100 MG, AS NEEDED
     Route: 048
     Dates: end: 20250704
  21. CARBOHYDRATES\FATTY ACIDS\MINERALS\PROTEIN\VITAMINS [Concomitant]
     Active Substance: CARBOHYDRATES\FATTY ACIDS\MINERALS\PROTEIN\VITAMINS
     Indication: Nutritional supplementation
     Dosage: 250 MILLILITER, PRN
     Route: 048
     Dates: start: 20250201, end: 20250704
  22. CARBOHYDRATES\FATTY ACIDS\MINERALS\PROTEIN\VITAMINS [Concomitant]
     Active Substance: CARBOHYDRATES\FATTY ACIDS\MINERALS\PROTEIN\VITAMINS
     Dosage: 250 MILLILITER, QD
     Route: 048
     Dates: start: 20250714
  23. RITUXIMAB [Concomitant]
     Active Substance: RITUXIMAB
     Indication: Product used for unknown indication
     Dosage: UNK
     Dates: start: 20250718
  24. RITUXIMAB [Concomitant]
     Active Substance: RITUXIMAB
     Dosage: UNK
     Dates: start: 20250812
  25. VONOPRAZAN FUMARATE [Concomitant]
     Active Substance: VONOPRAZAN FUMARATE
     Indication: Abdominal pain upper
     Dosage: 10 MG, BID
     Route: 048
     Dates: start: 20250717
  26. OLOPATADINE HYDROCHLORIDE [Concomitant]
     Active Substance: OLOPATADINE HYDROCHLORIDE
     Indication: Pruritus
     Dosage: 10 MG, BID
     Route: 048
     Dates: start: 20250728
  27. BETAMETHASONE BUTYRATE PROPIONATE [Concomitant]
     Active Substance: BETAMETHASONE BUTYRATE PROPIONATE
     Indication: Pruritus
     Dosage: APPROPRIATE AMOUNT, AS NEED (EXTERNAL USE)
     Dates: start: 20250726
  28. GLYCOSAMINOGLYCANS [Concomitant]
     Active Substance: GLYCOSAMINOGLYCANS
     Indication: Pruritus
     Dosage: APPROPRIATE AMOUNT, AS NEED (EXTERNAL USE) COATING
     Dates: start: 20250726
  29. HYDROXYZINE HYDROCHLORIDE [Concomitant]
     Active Substance: HYDROXYZINE HYDROCHLORIDE
     Indication: Insomnia
     Dosage: 25 MG, PRN
     Route: 048
     Dates: start: 20250801
  30. DEXCHLORPHENIRAMINE MALEATE [Concomitant]
     Active Substance: DEXCHLORPHENIRAMINE MALEATE
     Indication: Pruritus
     Dosage: 2 MG, PRN (AS NEEDED)
     Route: 048
     Dates: start: 20250801

REACTIONS (17)
  - B-cell lymphoma [Not Recovered/Not Resolved]
  - Neutropenia [Recovered/Resolved]
  - Disease progression [Recovered/Resolved]
  - Stomatitis [Recovered/Resolved]
  - Stomatitis [Recovered/Resolved]
  - Ventricular extrasystoles [Not Recovered/Not Resolved]
  - Blood immunoglobulin G decreased [Not Recovered/Not Resolved]
  - Neutropenia [Recovered/Resolved]
  - Abdominal discomfort [Recovered/Resolved]
  - Oedema peripheral [Recovered/Resolved]
  - Oedema peripheral [Recovered/Resolved]
  - Rash [Recovered/Resolved with Sequelae]
  - Pyrexia [Recovered/Resolved]
  - Pyrexia [Recovered/Resolved]
  - Raynaud^s phenomenon [Recovering/Resolving]
  - Medication error [Recovered/Resolved]
  - Disease progression [Recovered/Resolved]

NARRATIVE: CASE EVENT DATE: 20241113
